FAERS Safety Report 6798383-0 (Version None)
Quarter: 2010Q2

REPORT INFORMATION
  Report Type: 
  Country: None (occurrence: None)
  Receive Date: 20100622
  Receipt Date: 20100611
  Transmission Date: 20101027
  Serious: Yes (Other)
  Sender: FDA-Public Use
  Company Number: 013799

PATIENT
  Age: 42 Year
  Sex: Male
  Weight: 93 kg

DRUGS (10)
  1. CIMZIA [Suspect]
     Indication: CROHN'S DISEASE
     Dosage: (400 MG 1X/4 WEEKS SUBCUTANEOUS)
     Route: 058
     Dates: start: 20100401
  2. IMODIUM [Concomitant]
  3. RANITIDINE [Concomitant]
  4. CITALOPRAM [Concomitant]
  5. WELLBUTRIN [Concomitant]
  6. MAGNESIUM [Concomitant]
  7. CALCIUM D SAUTER [Concomitant]
  8. VITAMIN B12 NOS [Concomitant]
  9. POTASSIUM CITRATE [Concomitant]
  10. REMICADE [Concomitant]

REACTIONS (1)
  - SPINAL COLUMN STENOSIS [None]
